FAERS Safety Report 25859663 (Version 1)
Quarter: 2025Q3

REPORT INFORMATION
  Report Type: Spontaneous
  Country: US (occurrence: None)
  Receive Date: 20250926
  Receipt Date: 20250926
  Transmission Date: 20251020
  Serious: No
  Sender: FDA-CTU
  Company Number: None

PATIENT

DRUGS (22)
  1. ZEPBOUND [Suspect]
     Active Substance: TIRZEPATIDE
     Indication: Obesity
  2. Tryptyr 0.03% [Concomitant]
  3. nystatin (Mycostatin) 100,000 unit/mL suspension [Concomitant]
  4. venlafaxine (Effexor) 75 mg tablet [Concomitant]
  5. amitriptyline (Elavil) 10 mg tablet [Concomitant]
  6. busPIRone (Buspar) 7.5 mg tablet [Concomitant]
  7. traZODone (Desyrel) 100 mg tablet [Concomitant]
  8. estradiol (Estrace) 0.5 mg tablet [Concomitant]
  9. testosterone 20.25 mg/1.25 gram (1.62 %) gel in metered-dose pump [Concomitant]
  10. primidone (Mysoline) 50 mg tablet [Concomitant]
  11. pantoprazole (ProtoNix) 20 mg EC tablet [Concomitant]
  12. isosorbide dinitrate (Isordil) 20 mg tablet [Concomitant]
  13. hydroxychloroquine (Plaquenil) 200 mg tablet [Concomitant]
  14. gabapentin (Neurontin) 600 mg tablet [Concomitant]
  15. meloxicam (Mobic) 7.5 mg tablet [Concomitant]
  16. ARIPiprazole (Abilify) 2 mg tablet [Concomitant]
  17. fluticasone propion-salmeteroL (Advair Diskus) 500-50 mcg/dose diskus [Concomitant]
  18. ipratropium (Atrovent) 42 mcg (0.06 %) nasal spray [Concomitant]
  19. bremelanotide (Vyleesi) 1.75 mg/0.3 mL auto-injector [Concomitant]
  20. atenolol (Tenormin) 50 mg tablet [Concomitant]
  21. verapamil (Calan) 120 mg tablet [Concomitant]
  22. albuterol 2.5 mg/3 mL nebulizer solution [Concomitant]

REACTIONS (1)
  - Pain of skin [None]
